FAERS Safety Report 4443499-7 (Version None)
Quarter: 2004Q3

REPORT INFORMATION
  Report Type: 
  Country: None (occurrence: None)
  Receive Date: 20040908
  Receipt Date: 20040826
  Transmission Date: 20050211
  Serious: Yes (Death)
  Sender: FDA-Public Use
  Company Number: US-BRISTOL-MYERS SQUIBB COMPANY-12686663

PATIENT
  Age: 18 Year
  Sex: Male

DRUGS (3)
  1. ABILIFY [Suspect]
  2. ZYPREXA [Concomitant]
  3. CELEXA [Concomitant]

REACTIONS (1)
  - DEATH [None]
